FAERS Safety Report 4580452-7 (Version None)
Quarter: 2005Q1

REPORT INFORMATION
  Report Type: 
  Country: None (occurrence: None)
  Receive Date: 20050214
  Receipt Date: 20040129
  Transmission Date: 20050727
  Serious: No
  Sender: FDA-Public Use
  Company Number: US-GLAXOSMITHKLINE-A0495751A

PATIENT
  Age: 65 Year
  Sex: Male

DRUGS (4)
  1. LAMICTAL [Suspect]
     Indication: BIPOLAR DISORDER
     Route: 048
     Dates: start: 20031001
  2. NORVASC [Concomitant]
  3. TENORMIN [Concomitant]
  4. LIPITOR [Concomitant]

REACTIONS (2)
  - BLOOD SODIUM ABNORMAL [None]
  - DIZZINESS [None]
